FAERS Safety Report 7251143-9 (Version None)
Quarter: 2011Q1

REPORT INFORMATION
  Report Type: 
  Country: None (occurrence: None)
  Receive Date: 20110128
  Receipt Date: 20110114
  Transmission Date: 20110831
  Serious: Yes (Other)
  Sender: FDA-Public Use
  Company Number: US-CELGENEUS-163-20785-11011421

PATIENT
  Sex: Male

DRUGS (3)
  1. THALOMID [Suspect]
     Route: 048
     Dates: start: 20090501
  2. THALOMID [Suspect]
     Indication: MULTIPLE MYELOMA
     Route: 048
     Dates: start: 20080601
  3. THALOMID [Suspect]
     Route: 048
     Dates: start: 20090701

REACTIONS (1)
  - PERIPHERAL MOTOR NEUROPATHY [None]
